FAERS Safety Report 13281846 (Version 1)
Quarter: 2017Q1

REPORT INFORMATION
  Report Type: Spontaneous
  Country: US (occurrence: US)
  Receive Date: 20170228
  Receipt Date: 20170228
  Transmission Date: 20170428
  Serious: Yes (Death)
  Sender: FDA-Public Use
  Company Number: None

PATIENT
  Age: 12 Year
  Sex: Female

DRUGS (1)
  1. OPSUMIT [Suspect]
     Active Substance: MACITENTAN
     Indication: PULMONARY ARTERIAL HYPERTENSION
     Route: 048
     Dates: start: 20160606, end: 20170129

REACTIONS (6)
  - Multiple organ dysfunction syndrome [None]
  - Gastrointestinal perforation [None]
  - Cardio-respiratory arrest [None]
  - Pulmonary haemorrhage [None]
  - Gastrointestinal haemorrhage [None]
  - Bronchial disorder [None]

NARRATIVE: CASE EVENT DATE: 20170223
